FAERS Safety Report 5723617-0 (Version None)
Quarter: 2008Q2

REPORT INFORMATION
  Report Type: 
  Country: None (occurrence: None)
  Receive Date: 20080430
  Receipt Date: 20080422
  Transmission Date: 20081010
  Serious: Yes (Other)
  Sender: FDA-Public Use
  Company Number: PHBS2008IT04230

PATIENT
  Age: 58 Year
  Sex: Female

DRUGS (3)
  1. ZOLEDRONIC ACID [Suspect]
     Indication: METASTASES TO BONE
     Dosage: UNK, UNK
     Route: 065
     Dates: end: 20040501
  2. PAMIDRONATE DISODIUM [Suspect]
     Indication: METASTASES TO BONE
     Dosage: UNK, UNK
     Route: 065
     Dates: start: 20000601
  3. CAPECITABINE [Concomitant]
     Route: 065

REACTIONS (18)
  - ABSCESS JAW [None]
  - BONE DISORDER [None]
  - DEBRIDEMENT [None]
  - DENTAL TREATMENT [None]
  - FISTULA [None]
  - HYPERBARIC OXYGEN THERAPY [None]
  - JAW OPERATION [None]
  - MASS [None]
  - ORAL CAVITY FISTULA [None]
  - OSTEOLYSIS [None]
  - OSTEOMYELITIS [None]
  - OSTEONECROSIS [None]
  - PAIN IN JAW [None]
  - PLASTIC SURGERY [None]
  - PRIMARY SEQUESTRUM [None]
  - QUALITY OF LIFE DECREASED [None]
  - SECONDARY SEQUESTRUM [None]
  - SEQUESTRECTOMY [None]
